FAERS Safety Report 5048407-6 (Version None)
Quarter: 2006Q3

REPORT INFORMATION
  Report Type: 
  Country: None (occurrence: None)
  Receive Date: 20060711
  Receipt Date: 20060602
  Transmission Date: 20061208
  Serious: Yes (Hospitalization)
  Sender: FDA-Public Use
  Company Number: FR-MERCK-0606FRA00002

PATIENT
  Age: 76 Year
  Sex: Female
  Weight: 56 kg

DRUGS (10)
  1. NOROXIN [Suspect]
     Indication: CYSTITIS
     Route: 048
     Dates: start: 20060413, end: 20060416
  2. LEVOTHYROXINE SODIUM [Concomitant]
     Indication: HYPOTHYROIDISM
     Route: 065
  3. ACENOCOUMAROL [Concomitant]
     Indication: HEART VALVE REPLACEMENT
     Route: 065
  4. DIGOXIN [Concomitant]
     Indication: ARRHYTHMIA
     Route: 065
  5. PRAVASTATIN SODIUM [Concomitant]
     Indication: DYSLIPIDAEMIA
     Route: 048
  6. VALPROMIDE [Concomitant]
     Route: 065
  7. CITALOPRAM [Concomitant]
     Route: 065
  8. OXAZEPAM [Concomitant]
     Route: 065
  9. ADRAFINIL [Concomitant]
     Route: 065
  10. HYDROXYZINE HYDROCHLORIDE [Concomitant]
     Route: 065

REACTIONS (6)
  - ASTHENIA [None]
  - BLOOD LACTATE DEHYDROGENASE INCREASED [None]
  - HAEMATURIA [None]
  - HAEMOLYTIC ANAEMIA [None]
  - INTERNATIONAL NORMALISED RATIO INCREASED [None]
  - PALLOR [None]
